FAERS Safety Report 9025931 (Version 2)
Quarter: 2013Q1

REPORT INFORMATION
  Report Type: Spontaneous
  Country: US (occurrence: None)
  Receive Date: 20130104
  Receipt Date: 20130128
  Transmission Date: 20140127
  Serious: Yes (Hospitalization)
  Sender: FDA-Public Use
  Company Number: UCM201212-000090

PATIENT
  Age: 68 Year
  Sex: Female
  Weight: 72.58 kg

DRUGS (3)
  1. CLONIDINE HCL [Suspect]
     Indication: HYPERTENSION
     Dosage: THREE TIMES A DAY FOR FIRST TWO WEEKS AND THAN DOUBLED THE DOSE
     Dates: start: 20121110, end: 20121215
  2. DIOVAN [Concomitant]
  3. CARTIA [Concomitant]

REACTIONS (4)
  - Drug ineffective [None]
  - Blood pressure increased [None]
  - Product substitution issue [None]
  - Product quality issue [None]
